FAERS Safety Report 9227416 (Version 1)
Quarter: 2013Q2

REPORT INFORMATION
  Report Type: Spontaneous
  Country: CA (occurrence: None)
  Receive Date: 20130410
  Receipt Date: 20130410
  Transmission Date: 20140414
  Serious: Yes (Other)
  Sender: FDA-Public Use
  Company Number: SYM-2013-02314

PATIENT
  Age: 12 Year
  Sex: Male

DRUGS (3)
  1. FLUOROURACIL [Suspect]
     Indication: PANCREATIC CARCINOMA
     Dosage: 600MG/M2Q3W
  2. VINCRISTINE [Suspect]
     Indication: PANCREATIC CARCINOMA
  3. CISPLATIN [Suspect]
     Indication: PANCREATIC CARCINOMA

REACTIONS (5)
  - Nephropathy toxic [None]
  - Deafness [None]
  - Neuropathy peripheral [None]
  - Blood phosphorus decreased [None]
  - Blood magnesium decreased [None]
